FAERS Safety Report 13660309 (Version 1)
Quarter: 2017Q2

REPORT INFORMATION
  Report Type: Spontaneous
  Country: US (occurrence: US)
  Receive Date: 20170615
  Receipt Date: 20170615
  Transmission Date: 20170830
  Serious: No
  Sender: FDA-Public Use
  Company Number: None

PATIENT
  Age: 31 Year
  Sex: Female

DRUGS (1)
  1. EPCLUSA [Suspect]
     Active Substance: SOFOSBUVIR\VELPATASVIR
     Indication: HEPATITIS C
     Dosage: 400MG/100MG 1 DAILY ORAL
     Route: 048
     Dates: start: 20170606

REACTIONS (3)
  - Emotional disorder [None]
  - Anxiety [None]
  - Irritability [None]

NARRATIVE: CASE EVENT DATE: 20170613
